FAERS Safety Report 9045735 (Version 1)
Quarter: 2013Q1

REPORT INFORMATION
  Report Type: Spontaneous
  Country: US (occurrence: US)
  Receive Date: 20130131
  Receipt Date: 20130131
  Transmission Date: 20140127
  Serious: Yes (Other)
  Sender: FDA-Public Use
  Company Number: US-ABBOTT-12P-163-1013865-00

PATIENT
  Sex: 0

DRUGS (1)
  1. HUMIRA [Suspect]
     Indication: PRODUCT USED FOR UNKNOWN INDICATION

REACTIONS (7)
  - Surgery [Unknown]
  - Proctitis [Unknown]
  - Diarrhoea [Unknown]
  - Proctitis [Unknown]
  - Constipation [Unknown]
  - Anorectal discomfort [Unknown]
  - Back pain [Unknown]
